FAERS Safety Report 14412534 (Version 5)
Quarter: 2018Q2

REPORT INFORMATION
  Report Type: Report from Study
  Country: FR (occurrence: FR)
  Receive Date: 20180119
  Receipt Date: 20180516
  Transmission Date: 20180711
  Serious: Yes (Other)
  Sender: FDA-Public Use
  Company Number: PHHY2018FR006428

PATIENT
  Age: 18 Year
  Sex: Female

DRUGS (2)
  1. OPTIDRIL [Concomitant]
     Active Substance: ETHINYL ESTRADIOL\LEVONORGESTREL
     Indication: CHEMICAL CONTRACEPTION
     Route: 065
  2. COSENTYX [Suspect]
     Active Substance: SECUKINUMAB
     Indication: PSORIASIS
     Dosage: 300 MG, QMO
     Route: 065
     Dates: start: 20180101

REACTIONS (11)
  - Injection site pain [Recovered/Resolved]
  - Vagus nerve disorder [Recovered/Resolved]
  - Nasopharyngitis [Recovered/Resolved]
  - Pruritus [Recovered/Resolved]
  - Inappropriate schedule of drug administration [Unknown]
  - Loss of consciousness [Recovered/Resolved]
  - Breast pain [Recovered/Resolved]
  - Nasal congestion [Recovered/Resolved]
  - Vomiting [Recovered/Resolved]
  - Malaise [Unknown]
  - Oropharyngeal pain [Recovered/Resolved]

NARRATIVE: CASE EVENT DATE: 20180101
